FAERS Safety Report 8694048 (Version 2)
Quarter: 2013Q2

REPORT INFORMATION
  Report Type: Report from Study
  Country: MX (occurrence: MX)
  Receive Date: 20120731
  Receipt Date: 20130509
  Transmission Date: 20140414
  Serious: Yes (Death, Hospitalization)
  Sender: FDA-Public Use
  Company Number: PHHY2012MX065244

PATIENT
  Age: 80 Year
  Sex: Female

DRUGS (3)
  1. ACLASTA [Suspect]
     Indication: OSTEOPOROSIS
     Dosage: 5 MG/ 100 ML, EACH YEAR
     Route: 042
     Dates: start: 201206
  2. TREMEPEN [Concomitant]
     Indication: PAIN IN EXTREMITY
     Dosage: UNK
     Dates: start: 2010
  3. TREMEPEN [Concomitant]
     Dosage: 2 DF, QD
     Dates: start: 201201

REACTIONS (2)
  - Pancreas infection [Fatal]
  - Constipation [Fatal]
